FAERS Safety Report 8368241-9 (Version None)
Quarter: 2012Q2

REPORT INFORMATION
  Report Type: 
  Country: None (occurrence: None)
  Receive Date: 20120517
  Receipt Date: 20120510
  Transmission Date: 20120825
  Serious: Yes (Hospitalization, Other)
  Sender: FDA-Public Use
  Company Number: US-MERCK-1110USA04122

PATIENT
  Age: 55 Year
  Sex: Female

DRUGS (5)
  1. FOSAMAX [Suspect]
     Indication: OSTEOPOROSIS
     Route: 048
     Dates: start: 19990101, end: 20001001
  2. FOSAMAX [Suspect]
     Route: 048
     Dates: start: 20000101, end: 20060201
  3. FOSAMAX [Suspect]
     Route: 048
     Dates: start: 20080101, end: 20091001
  4. ACTONEL [Suspect]
     Indication: OSTEOPOROSIS
     Route: 048
     Dates: start: 20060101, end: 20080501
  5. VITAMINS (UNSPECIFIED) [Concomitant]
     Route: 065
     Dates: start: 19900101

REACTIONS (12)
  - LOW TURNOVER OSTEOPATHY [None]
  - HYPOTHYROIDISM [None]
  - ADVERSE EVENT [None]
  - INFECTION [None]
  - HUMERUS FRACTURE [None]
  - HAND FRACTURE [None]
  - FEMUR FRACTURE [None]
  - INAPPROPRIATE SCHEDULE OF DRUG ADMINISTRATION [None]
  - VITAMIN D DEFICIENCY [None]
  - HORMONE THERAPY [None]
  - UTERINE DISORDER [None]
  - HYPERTENSION [None]
